FAERS Safety Report 8903028 (Version 2)
Quarter: 2012Q4

REPORT INFORMATION
  Report Type: 
  Country: US (occurrence: US)
  Receive Date: 20121112
  Receipt Date: 20121211
  Transmission Date: 20130627
  Serious: Yes (Death, Life-Threatening, Hospitalization, Congenital Anomaly, Other)
  Sender: FDA-Public Use
  Company Number: US-ELI_LILLY_AND_COMPANY-US201211000130

PATIENT
  Sex: Female

DRUGS (3)
  1. CYMBALTA [Suspect]
     Indication: DEPRESSION
     Dosage: 120 mg, UNK
     Route: 064
     Dates: end: 20101031
  2. CLINDAMYCIN [Concomitant]
     Dosage: 150 mg, UNK
     Route: 064
  3. ACETAMINOPHEN W/CODEINE [Concomitant]

REACTIONS (11)
  - Hypoplastic left heart syndrome [Fatal]
  - Neonatal respiratory distress syndrome [Fatal]
  - Multi-organ failure [Fatal]
  - Oesophageal atresia [Not Recovered/Not Resolved]
  - Atrial septal defect [Not Recovered/Not Resolved]
  - Neonatal respiratory distress syndrome [Not Recovered/Not Resolved]
  - Hypoperfusion [Not Recovered/Not Resolved]
  - Foetal growth restriction [Not Recovered/Not Resolved]
  - Premature baby [Unknown]
  - Oligohydramnios [Recovered/Resolved with Sequelae]
  - Foetal exposure during pregnancy [Recovered/Resolved with Sequelae]
